FAERS Safety Report 16464848 (Version 1)
Quarter: 2019Q2

REPORT INFORMATION
  Report Type: Spontaneous
  Country: NL (occurrence: NL)
  Receive Date: 20190621
  Receipt Date: 20190621
  Transmission Date: 20190711
  Serious: Yes (Hospitalization, Other)
  Sender: FDA-Public Use
  Company Number: NL-MYLANLABS-2019M1057987

PATIENT
  Age: 53 Year
  Sex: Male

DRUGS (3)
  1. LEVETIRACETAM. [Suspect]
     Active Substance: LEVETIRACETAM
     Indication: SEIZURE
     Dosage: 750 MILLIGRAM, QD
     Route: 065
  2. PREDNISONE. [Concomitant]
     Active Substance: PREDNISONE
     Dosage: WAS TAPERED RAPIDLY WITHIN 4 DAYS
  3. PREDNISONE. [Concomitant]
     Active Substance: PREDNISONE
     Dosage: 4 MILLIGRAM, QD
     Route: 065

REACTIONS (4)
  - Aggression [Recovered/Resolved]
  - Mental status changes [Recovered/Resolved]
  - Psychiatric symptom [Recovered/Resolved]
  - Abnormal behaviour [Recovered/Resolved]
